FAERS Safety Report 15900928 (Version 2)
Quarter: 2019Q1

REPORT INFORMATION
  Report Type: Report from Study
  Country: US (occurrence: US)
  Receive Date: 20190201
  Receipt Date: 20190320
  Transmission Date: 20190417
  Serious: Yes (Hospitalization, Other)
  Sender: FDA-Public Use
  Company Number: US-AMGEN-USACT2019014080

PATIENT
  Age: 60 Year
  Sex: Male
  Weight: 71.7 kg

DRUGS (3)
  1. FOLFOX [Suspect]
     Active Substance: FLUOROURACIL\LEUCOVORIN CALCIUM\OXALIPLATIN
     Indication: ADENOCARCINOMA OF COLON
     Dosage: UNK UNK, Q2WK
     Route: 042
     Dates: start: 20181008
  2. XELODA [Concomitant]
     Active Substance: CAPECITABINE
     Indication: ADENOCARCINOMA OF COLON
     Dosage: UNK
     Dates: start: 20190110
  3. PANITUMUMAB [Suspect]
     Active Substance: PANITUMUMAB
     Indication: ADENOCARCINOMA OF COLON
     Dosage: 6 MG/KG, Q2WK
     Route: 042
     Dates: start: 20181008

REACTIONS (13)
  - Abdominal distension [Unknown]
  - Diarrhoea [Unknown]
  - Weight decreased [Unknown]
  - Tooth fracture [Unknown]
  - Lip injury [Unknown]
  - Vomiting [Unknown]
  - Faeces hard [Unknown]
  - Syncope [Unknown]
  - Intestinal obstruction [Unknown]
  - Dizziness [Unknown]
  - Dehydration [Unknown]
  - Constipation [Unknown]
  - Asthenia [Unknown]

NARRATIVE: CASE EVENT DATE: 20190110
